FAERS Safety Report 6159333-3 (Version None)
Quarter: 2009Q2

REPORT INFORMATION
  Report Type: 
  Country: None (occurrence: None)
  Receive Date: 20090414
  Receipt Date: 20090403
  Transmission Date: 20091009
  Serious: Yes (Hospitalization)
  Sender: FDA-Public Use
  Company Number: 040675

PATIENT
  Age: 61 Year
  Sex: Female

DRUGS (5)
  1. BISOPROLOL FUMARATE [Suspect]
     Indication: ATRIAL FIBRILLATION
     Dosage: 5 MG (5 MG, 1 IN 1 D), ORAL
     Route: 048
     Dates: start: 20080825, end: 20080826
  2. DIGOXIN [Suspect]
     Indication: ATRIAL FIBRILLATION
     Dosage: (0.25 MG), ORAL
     Route: 048
     Dates: end: 20080826
  3. METFORMIN HYDROCHLORIDE [Concomitant]
  4. SPIRONOLACTONE [Concomitant]
  5. ATORVASTATIN CALCIUM [Concomitant]

REACTIONS (4)
  - ATRIOVENTRICULAR BLOCK [None]
  - DRUG INTERACTION [None]
  - NAUSEA [None]
  - VOMITING [None]
